FAERS Safety Report 5296579-0 (Version None)
Quarter: 2007Q2

REPORT INFORMATION
  Report Type: 
  Country: None (occurrence: None)
  Receive Date: 20070413
  Receipt Date: 20070405
  Transmission Date: 20071010
  Serious: Yes (Hospitalization)
  Sender: FDA-Public Use
  Company Number: CA-BOEHRINGER INGELHEIM GMBH, GERMANY-2007-CN-00263CN

PATIENT
  Sex: Female

DRUGS (4)
  1. MICARDIS [Suspect]
     Dates: start: 20020101
  2. ATENOLOL [Concomitant]
  3. ASPIRIN [Concomitant]
  4. CALCIUM [Concomitant]

REACTIONS (6)
  - ARTERIAL OCCLUSIVE DISEASE [None]
  - ASTHENIA [None]
  - DIZZINESS [None]
  - FATIGUE [None]
  - LOSS OF CONSCIOUSNESS [None]
  - SYNCOPE [None]
